FAERS Safety Report 23161183 (Version 1)
Quarter: 2023Q4

REPORT INFORMATION
  Report Type: Report from Study
  Country: PT (occurrence: KR)
  Receive Date: 20231108
  Receipt Date: 20231108
  Transmission Date: 20240110
  Serious: Yes (Hospitalization)
  Sender: FDA-Public Use
  Company Number: KR-BIAL-BIAL-15656

PATIENT

DRUGS (12)
  1. ESLICARBAZEPINE ACETATE [Suspect]
     Active Substance: ESLICARBAZEPINE ACETATE
     Indication: Epilepsy
     Dosage: 400 MILLIGRAM, QD
     Route: 048
     Dates: start: 20230919, end: 20231003
  2. ESLICARBAZEPINE ACETATE [Suspect]
     Active Substance: ESLICARBAZEPINE ACETATE
     Dosage: 800 MILLIGRAM, QD
     Route: 048
     Dates: start: 20231004, end: 20231019
  3. DESOWEN [Concomitant]
     Active Substance: DESONIDE
     Indication: Dermatitis allergic
     Dosage: 360 MILLILITER, UNKNOWN
     Route: 062
     Dates: start: 20231023, end: 20231023
  4. DESOWEN [Concomitant]
     Active Substance: DESONIDE
     Dosage: 120 MILLILITER, UNKNOWN
     Route: 062
     Dates: start: 20231023
  5. Disolrin [Concomitant]
     Indication: Dermatitis allergic
     Dosage: 40 MILLIGRAM, QD
     Route: 042
     Dates: start: 20231023
  6. EPILATAM [Concomitant]
     Indication: Epilepsy
     Dosage: 500 MILLIGRAM, BID
     Route: 042
     Dates: start: 20231023
  7. FORUS [Concomitant]
     Indication: Prophylaxis
     Dosage: UNK
     Route: 047
     Dates: start: 20231023
  8. CYCLOSPORINE [Concomitant]
     Active Substance: CYCLOSPORINE
     Indication: Prophylaxis
     Dosage: UNK, UNKNOWN
     Route: 047
     Dates: start: 20231023
  9. K CAB [Concomitant]
     Indication: Gastrointestinal disorder
     Dosage: 50 MILLIGRAM, QD
     Route: 048
     Dates: start: 20231023
  10. LEVOKACIN [Concomitant]
     Indication: Prophylaxis
     Dosage: UNK, UNKNOWN
     Route: 047
     Dates: start: 20231023
  11. Predbell [Concomitant]
     Indication: Prophylaxis
     Dosage: UNK, UNKNOWN
     Route: 047
     Dates: start: 20231023
  12. URSODIOL [Concomitant]
     Active Substance: URSODIOL
     Indication: Hepatic enzyme increased
     Dosage: 100 MILLIGRAM, TID
     Route: 048
     Dates: start: 20231023

REACTIONS (1)
  - Dermatitis allergic [Recovering/Resolving]

NARRATIVE: CASE EVENT DATE: 20231003
